FAERS Safety Report 7392724-1 (Version None)
Quarter: 2011Q2

REPORT INFORMATION
  Report Type: 
  Country: None (occurrence: None)
  Receive Date: 20110404
  Receipt Date: 20110324
  Transmission Date: 20111010
  Serious: Yes (Death, Life-Threatening, Hospitalization, Other)
  Sender: FDA-Public Use
  Company Number: FR-PFIZER INC-2010147105

PATIENT
  Age: 72 Year
  Sex: Male
  Weight: 70 kg

DRUGS (73)
  1. LEVOCARNIL [Concomitant]
     Indication: SUPPLEMENTATION THERAPY
     Dosage: 1 G, 3X/DAY
     Route: 042
     Dates: start: 20101014
  2. ALBUMINAR-20 [Concomitant]
     Dosage: 200 ML, 1X/DAY
     Route: 042
     Dates: start: 20101005, end: 20101005
  3. HETASTARCH [Concomitant]
     Indication: HYPOVOLAEMIA
     Dosage: 500 ML, VARIABLE
     Route: 042
     Dates: start: 20101001
  4. ALBUMIN 4% [Concomitant]
     Dosage: 500 ML, 1X/DAY
     Route: 042
     Dates: start: 20101011, end: 20101011
  5. IMIPENEM [Concomitant]
     Dosage: 1000 MG, 1X/DAY
     Route: 042
     Dates: start: 20101020, end: 20101020
  6. ALFENTANIL HYDROCHLORIDE [Concomitant]
     Indication: ANALGESIC THERAPY
     Dosage: 0.25 MG, AS NEEDED
     Route: 042
     Dates: start: 20101001, end: 20101015
  7. HEPARIN [Concomitant]
     Indication: PULMONARY EMBOLISM
     Dosage: 5333 IU, DAILY
     Route: 042
     Dates: start: 20101002, end: 20101002
  8. ARGATROBAN [Suspect]
     Indication: HEPARIN-INDUCED THROMBOCYTOPENIA
     Dosage: 0.5 UG/KG/MIN (2ML/HR)
     Route: 042
     Dates: start: 20101022, end: 20101022
  9. ARGATROBAN [Suspect]
     Dosage: 10.5 UG/KG/MIN (42 ML/H)
     Route: 042
     Dates: start: 20101022, end: 20101022
  10. FUROSEMIDE [Concomitant]
     Indication: RENAL IMPAIRMENT
     Dosage: 2 G, DAILY
     Route: 042
     Dates: start: 20101003, end: 20101111
  11. CALCIUM CHLORIDE ANHYDROUS AND CALCIUM CHLORIDE DIHYDRATE [Concomitant]
     Indication: HYPOCALCAEMIA
     Dosage: 2 G, CONTINUOUSLY 10 HRS
     Route: 042
     Dates: start: 20101002, end: 20101002
  12. MIDAZOLAM [Concomitant]
     Indication: SEDATION
     Dosage: 50 MG, CONTINUOUS
     Route: 042
     Dates: start: 20101002, end: 20101003
  13. PROPOFOL [Concomitant]
     Indication: SEDATION
     Dosage: 100 MG/HR, CONTINUOUS EVERY DURING 19 HRS
     Route: 042
     Dates: start: 20101001, end: 20101002
  14. TERBUTALINE SULFATE [Concomitant]
     Indication: BRONCHOSPASM
     Dosage: 5 MG, 3X/DAY
     Route: 045
     Dates: start: 20101021, end: 20101118
  15. ALBUMINAR-20 [Concomitant]
     Dosage: 100 ML, 2X/DAY
     Route: 042
     Dates: start: 20101015, end: 20101020
  16. IBUPROFEN [Concomitant]
     Indication: ANAEMIA
     Dosage: 100 MG, 2 IN 1 WEEK
     Route: 042
     Dates: start: 20101001, end: 20101005
  17. ESOMEPRAZOLE [Concomitant]
     Indication: PROPHYLAXIS AGAINST GASTROINTESTINAL ULCER
     Dosage: 40 MG, 2X/DAY
     Route: 042
     Dates: start: 20101001, end: 20101011
  18. VANCOMYCIN [Concomitant]
     Indication: PERITONITIS
     Dosage: 2 G/L(2GM,CONTINUOUS)
     Route: 042
     Dates: start: 20101002, end: 20101018
  19. IPRATROPIUM BROMIDE [Concomitant]
     Indication: BRONCHOSPASM
     Dosage: 0.5 MG, 3X/DAY
     Route: 045
     Dates: start: 20101021, end: 20101118
  20. ALBUMIN 4% [Concomitant]
     Dosage: 500 ML, 1X/DAY
     Route: 042
     Dates: start: 20101015, end: 20101015
  21. CISATRACURIUM [Concomitant]
     Indication: PRODUCT USED FOR UNKNOWN INDICATION
     Dosage: 10 MG, 1X/DAY
     Route: 042
     Dates: start: 20101001, end: 20101002
  22. SERPASIL-ESIDRIX [Concomitant]
     Indication: SEDATION
     Dosage: 100 MG, 1X/DAY
     Route: 042
     Dates: start: 20101001, end: 20101002
  23. ERYTHROMYCIN [Concomitant]
     Indication: GASTROINTESTINAL HYPERMOTILITY
     Dosage: 250 MG, 3X/DAY
     Route: 042
     Dates: start: 20101010, end: 20101012
  24. IMIPENEM [Concomitant]
     Indication: PERITONITIS
     Dosage: 1000 MG, 1X/DAY
     Route: 042
     Dates: start: 20101001, end: 20101002
  25. INSULIN PORCINE [Concomitant]
     Indication: DIABETES MELLITUS INADEQUATE CONTROL
     Dosage: VARIABLE
     Route: 042
     Dates: start: 20101001
  26. HYDROCORTISONE [Concomitant]
     Dosage: 50 MG, 2X/DAY
     Route: 042
     Dates: start: 20101013, end: 20101020
  27. SUFENTANIL CITRATE [Concomitant]
     Dosage: 5 MG/HR CONTINUOUS
     Route: 042
     Dates: start: 20101006, end: 20101006
  28. AMIODARONE [Concomitant]
     Dosage: 200 MG, 1X/DAY
     Route: 048
     Dates: start: 20101011, end: 20101019
  29. AMIKACIN [Concomitant]
     Dosage: 1500 MG, 1X/DAY
     Route: 042
     Dates: start: 20101002, end: 20101008
  30. NEFOPAM [Concomitant]
     Indication: ANALGESIC THERAPY
     Dosage: 80 MG/J (80MG CONTINUOUS)
     Route: 042
     Dates: start: 20101009, end: 20101012
  31. ACETAMINOPHEN [Concomitant]
     Indication: ANALGESIC THERAPY
     Dosage: 1 G, 3X/DAY
     Route: 042
     Dates: start: 20101009, end: 20101012
  32. CYANOCOBALAMIN [Concomitant]
     Indication: MEDICAL DIET
     Dosage: 1000 MG, 1X/DAY
     Route: 042
     Dates: start: 20101014, end: 20101014
  33. NOREPINEPHRINE [Concomitant]
     Indication: SEPTIC SHOCK
     Dosage: VARIABLE (MG, 1IN 1D)
     Route: 042
     Dates: start: 20101001, end: 20101020
  34. HEPARIN [Concomitant]
     Indication: GASTRIC ULCER
     Dosage: 533 IU, DAILY
     Route: 042
     Dates: start: 20101007, end: 20101010
  35. FUROSEMIDE [Concomitant]
     Indication: RENAL FAILURE
     Dosage: 40 MG, CONTINUOUS DURING 3 HRS
     Route: 042
     Dates: start: 20101002, end: 20101002
  36. AMIODARONE [Concomitant]
     Dosage: 200 MG, 1X/DAY
     Route: 048
     Dates: start: 20101015, end: 20101019
  37. VITAMIN K TAB [Concomitant]
     Indication: MEDICAL DIET
     Dosage: 10 MG, WEEKLY
     Route: 042
     Dates: start: 20101019
  38. DOBUTAMIN ^HEXAL^ [Concomitant]
     Indication: CARDIAC FAILURE
     Dosage: 25 MG/HR
     Route: 042
     Dates: start: 20101002, end: 20101003
  39. ACETYLCYSTEINE [Concomitant]
     Indication: RENAL DISORDER
     Dosage: 0.6 G, 2X/DAY
     Route: 042
     Dates: start: 20101001, end: 20101003
  40. TIENAM [Concomitant]
  41. IPRATROPIUM BROMIDE [Concomitant]
     Indication: BRONCHIAL DISORDER
     Dosage: 0.5 MG, 4X/DAY
     Route: 045
     Dates: start: 20101001, end: 20101006
  42. TERBUTALINE SULFATE [Concomitant]
     Indication: BRONCHIAL DISORDER
     Dosage: 5 MG, 4X/DAY
     Route: 045
     Dates: start: 20101001, end: 20101006
  43. AMIODARONE [Concomitant]
     Dosage: 300 MG, CONTINUOUS
     Route: 042
     Dates: start: 20101002, end: 20101011
  44. FOLIC ACID [Concomitant]
     Indication: MEDICAL DIET
     Dosage: 25 MG, CONTINUOUS
     Route: 042
     Dates: start: 20101014
  45. ASCORBIC ACID [Concomitant]
     Dosage: 1 G, 1X/DAY
     Route: 042
     Dates: start: 20101003, end: 20101012
  46. ALBUMIN 4% [Concomitant]
     Indication: HYPOALBUMINAEMIA
     Dosage: 500 ML, 1X/DAY
     Route: 042
     Dates: start: 20101001, end: 20101004
  47. ESOMEPRAZOLE [Concomitant]
     Dosage: 40 MG, 1X/DAY
     Route: 042
     Dates: start: 20101011
  48. AMIKACIN [Concomitant]
     Dosage: 2 G, 1X/DAY
     Route: 042
     Dates: start: 20101003, end: 20101003
  49. LEVOCARNITINE [Concomitant]
     Indication: SUPPLEMENTATION THERAPY
     Dosage: 1 G, 3X/DAY
     Route: 042
     Dates: start: 20101014
  50. HALOPERIDOL [Concomitant]
     Indication: SEDATION
     Dosage: 2 MG, 1X/DAY
     Route: 042
     Dates: start: 20101019, end: 20101019
  51. PRIMAXIN [Concomitant]
     Indication: PERITONITIS
     Dosage: 500 MG, 3X/DAY
     Route: 042
     Dates: start: 20101001, end: 20101028
  52. HYDROCORTISONE [Concomitant]
     Indication: SHOCK
     Dosage: 200 MG, DAILY
     Route: 042
     Dates: start: 20101001, end: 20101022
  53. HYDROCORTISONE [Concomitant]
     Indication: PRODUCT USED FOR UNKNOWN INDICATION
     Dosage: 50 MG, 3X/DAY
     Route: 042
     Dates: start: 20101011, end: 20101013
  54. SUFENTANIL CITRATE [Concomitant]
     Indication: SEDATION
     Dosage: 4 MG/HR CONTINUOUS
     Route: 042
     Dates: start: 20101001, end: 20101003
  55. AMIODARONE [Concomitant]
     Indication: ARRHYTHMIA
     Dosage: 300 MG, CONTINUOUS DURING 3 HRS
     Route: 042
     Dates: start: 20101002, end: 20101002
  56. ALBUMINAR-20 [Concomitant]
     Indication: HYPOALBUMINAEMIA
     Dosage: 100 ML, 3X/DAY
     Route: 042
     Dates: start: 20101001, end: 20101003
  57. BUDESONIDE [Concomitant]
     Indication: BRONCHIAL DISORDER
     Dosage: 1 MG, UNK
     Route: 045
     Dates: start: 20101019, end: 20101019
  58. INTERFERON ALFA [Concomitant]
     Indication: ANAEMIA
     Dosage: 2 DF, 1X/DAY
     Route: 042
     Dates: start: 20101002, end: 20101003
  59. RED BLOOD CELLS [Concomitant]
     Indication: ANAEMIA
     Dosage: 2 DF, 1X/DAY
     Route: 042
     Dates: start: 20101005, end: 20101006
  60. NOREPINEPHRINE [Concomitant]
     Dosage: UNK
     Route: 042
     Dates: start: 20101001, end: 20101020
  61. HYDROCORTISONE [Concomitant]
     Dosage: 100 MG, 4X/DAY
     Route: 042
     Dates: start: 20101001, end: 20101011
  62. ALBUMINAR-20 [Concomitant]
     Dosage: 100 ML, 1X/DAY
     Route: 042
     Dates: start: 20101009, end: 20101009
  63. ASCORBIC ACID [Concomitant]
     Indication: MEDICAL DIET
     Dosage: 1 G, 3 IN A WEEK
     Route: 042
     Dates: start: 20101012
  64. ESCITALOPRAM OXALATE [Concomitant]
     Indication: DEPRESSION
     Dosage: 10 MG, 1X/DAY
     Route: 048
     Dates: start: 20101021, end: 20101026
  65. PHOCYTAN [Concomitant]
     Indication: HYPOPHOSPHATAEMIA
     Dosage: 25 MG/HR,CONTINUOUS
     Route: 042
     Dates: start: 20101004, end: 20101004
  66. AMIKACIN [Concomitant]
     Indication: PERITONITIS
     Dosage: 1500 MG, 1X/DAY
     Route: 042
     Dates: start: 20101001, end: 20101002
  67. EPINEPHRINE [Concomitant]
     Indication: SEPTIC SHOCK
     Dosage: 50 MG, (CONTINUOUS
     Route: 042
     Dates: start: 20101003, end: 20101010
  68. HYDROXYZINE [Concomitant]
     Indication: ANXIOLYTIC THERAPY
     Dosage: 50 MG, 1X/DAY
     Route: 042
     Dates: start: 20101012, end: 20101014
  69. RED BLOOD CELLS [Concomitant]
     Dosage: 2 DF, 1X/DAY
     Route: 042
     Dates: start: 20101018, end: 20101018
  70. INNOHEP [Concomitant]
     Indication: PULMONARY EMBOLISM
     Dosage: 0.6 ML, 1X/DAY
     Route: 058
     Dates: end: 20101001
  71. HEPARIN [Concomitant]
     Dosage: 550 IU, DAILY
     Route: 042
     Dates: start: 20101010, end: 20101011
  72. HEPARIN [Concomitant]
     Dosage: 5000 IU, DAILY
     Route: 042
     Dates: start: 20101013, end: 20101021
  73. DROTRECOGIN ALFA [Concomitant]

REACTIONS (9)
  - SEPSIS [None]
  - ACUTE RESPIRATORY DISTRESS SYNDROME [None]
  - PNEUMATOSIS INTESTINALIS [None]
  - MOUTH HAEMORRHAGE [None]
  - EPISTAXIS [None]
  - PERITONITIS [None]
  - COLITIS [None]
  - MULTI-ORGAN FAILURE [None]
  - MEDICATION ERROR [None]
